FAERS Safety Report 11339273 (Version 1)
Quarter: 2015Q3

REPORT INFORMATION
  Report Type: Report from Study
  Country: US (occurrence: US)
  Receive Date: 20150804
  Receipt Date: 20150804
  Transmission Date: 20151125
  Serious: Yes (Other)
  Sender: FDA-Public Use
  Company Number: PHEH2015US013619

PATIENT
  Age: 45 Year
  Sex: Female
  Weight: 65 kg

DRUGS (6)
  1. GILENYA [Suspect]
     Active Substance: FINGOLIMOD HYDROCHLORIDE
     Indication: MULTIPLE SCLEROSIS
     Dosage: 0.5 MG, QD
     Route: 048
     Dates: start: 201410
  2. ONDANSETRON [Concomitant]
     Active Substance: ONDANSETRON
     Indication: PRODUCT USED FOR UNKNOWN INDICATION
     Route: 065
  3. LEXAPRO [Concomitant]
     Active Substance: ESCITALOPRAM OXALATE
     Indication: DEPRESSED MOOD
  4. ZOLPIDEM TARTRATE. [Concomitant]
     Active Substance: ZOLPIDEM TARTRATE
     Indication: PRODUCT USED FOR UNKNOWN INDICATION
     Route: 065
  5. ATIVAN [Concomitant]
     Active Substance: LORAZEPAM
     Indication: DEPRESSED MOOD
  6. ALBUTEROL SULFATE. [Concomitant]
     Active Substance: ALBUTEROL SULFATE
     Indication: PRODUCT USED FOR UNKNOWN INDICATION
     Route: 065

REACTIONS (25)
  - Hemiplegia [Unknown]
  - Hypoaesthesia [Unknown]
  - Nausea [Unknown]
  - Back pain [Unknown]
  - Stress urinary incontinence [Unknown]
  - Vomiting [Unknown]
  - Gait disturbance [Unknown]
  - Constipation [Unknown]
  - Headache [Unknown]
  - Dizziness [Unknown]
  - Multiple sclerosis relapse [Unknown]
  - Muscular weakness [Unknown]
  - Insomnia [Unknown]
  - Fall [Unknown]
  - Phonophobia [Unknown]
  - Influenza [Unknown]
  - Paraesthesia [Unknown]
  - Muscle spasms [Unknown]
  - Hemiparesis [Unknown]
  - Pain in extremity [Unknown]
  - Diarrhoea [Unknown]
  - Muscle contracture [Unknown]
  - Panic attack [Recovering/Resolving]
  - Photophobia [Unknown]
  - Joint lock [Unknown]

NARRATIVE: CASE EVENT DATE: 2015
